FAERS Safety Report 25259398 (Version 1)
Quarter: 2025Q2

REPORT INFORMATION
  Report Type: Spontaneous
  Country: US (occurrence: None)
  Receive Date: 20250430
  Receipt Date: 20250430
  Transmission Date: 20250717
  Serious: Yes (Other)
  Sender: FDA-CTU
  Company Number: None

PATIENT
  Age: 26 Year
  Sex: Male
  Weight: 78.75 kg

DRUGS (2)
  1. FINASTERIDE [Suspect]
     Active Substance: FINASTERIDE
     Indication: Alopecia
     Route: 048
     Dates: start: 20240917, end: 20241017
  2. FINASTERIDE [Suspect]
     Active Substance: FINASTERIDE
     Indication: Prophylaxis

REACTIONS (8)
  - Testicular pain [None]
  - Semen volume decreased [None]
  - Pain [None]
  - Pelvic floor dysfunction [None]
  - Genital pain [None]
  - Fatigue [None]
  - Abdominal pain [None]
  - Brain fog [None]

NARRATIVE: CASE EVENT DATE: 20240917
